FAERS Safety Report 21069494 (Version 2)
Quarter: 2024Q3

REPORT INFORMATION
  Report Type: Spontaneous
  Country: US (occurrence: US)
  Receive Date: 20220712
  Receipt Date: 20240722
  Transmission Date: 20241016
  Serious: No
  Sender: ASTELLAS
  Company Number: US-ASTELLAS-2022US009684

PATIENT
  Age: 35 Year
  Sex: Male

DRUGS (5)
  1. MYRBETRIQ [Suspect]
     Active Substance: MIRABEGRON
     Indication: Urinary incontinence
     Dosage: 50 MG, ONCE DAILY (TAKING A LONG TIME/MANY YEARS)
     Route: 065
  2. UROXATRAL [Concomitant]
     Active Substance: ALFUZOSIN HYDROCHLORIDE
     Indication: Product used for unknown indication
     Dosage: 1 DF, ONCE DAILY (AT NIGHT)
     Route: 065
     Dates: start: 1999
  3. LINZESS [Concomitant]
     Active Substance: LINACLOTIDE
     Indication: Product used for unknown indication
     Dosage: UNK UNK, UNKNOWN FREQ.
     Route: 065
  4. DITROPAN [Concomitant]
     Active Substance: OXYBUTYNIN CHLORIDE
     Indication: Product used for unknown indication
     Dosage: UNK UNK, UNKNOWN FREQ.
     Route: 065
  5. COLACE [Concomitant]
     Active Substance: DOCUSATE SODIUM
     Indication: Product used for unknown indication
     Dosage: 1 DF, ONCE DAILY (ONE IN THE MONING)
     Route: 065

REACTIONS (4)
  - Abdominal pain [Unknown]
  - Constipation [Unknown]
  - Therapeutic product effect incomplete [Unknown]
  - Off label use [Unknown]
